FAERS Safety Report 8849007 (Version 3)
Quarter: 2013Q1

REPORT INFORMATION
  Report Type: Spontaneous
  Country: ES (occurrence: ES)
  Receive Date: 20121019
  Receipt Date: 20130124
  Transmission Date: 20140127
  Serious: Yes (Other)
  Sender: FDA-Public Use
  Company Number: ES-AMGEN-ESPSP2012064719

PATIENT
  Age: 41 Year
  Sex: Male
  Weight: 81 kg

DRUGS (2)
  1. ENBREL [Suspect]
     Indication: PSORIATIC ARTHROPATHY
     Dosage: 50 MG, 2X/WEEK
     Dates: start: 20060605, end: 201204
  2. ENBREL [Suspect]
     Dosage: 1 DF, WEEKLY
     Dates: start: 201204

REACTIONS (2)
  - Drug ineffective [Not Recovered/Not Resolved]
  - Skin wound [Not Recovered/Not Resolved]
